FAERS Safety Report 8151649-4 (Version None)
Quarter: 2012Q1

REPORT INFORMATION
  Report Type: 
  Country: None (occurrence: None)
  Receive Date: 20120220
  Receipt Date: 20120210
  Transmission Date: 20120608
  Serious: Yes (Death)
  Sender: FDA-Public Use
  Company Number: JP-ROCHE-1023428

PATIENT
  Sex: Male

DRUGS (10)
  1. ASPIRIN [Concomitant]
     Route: 048
     Dates: end: 20111130
  2. TICLOPIDINE HCL [Concomitant]
     Route: 048
     Dates: end: 20111130
  3. PREDNISOLONE [Concomitant]
     Indication: RHEUMATOID ARTHRITIS
     Route: 048
     Dates: end: 20110201
  4. FAMOTIDINE [Concomitant]
     Route: 048
     Dates: end: 20111123
  5. ACTEMRA [Suspect]
     Indication: RHEUMATOID ARTHRITIS
     Route: 041
     Dates: start: 20100803, end: 20110603
  6. LIVALO [Concomitant]
     Route: 048
     Dates: end: 20111130
  7. ACTEMRA [Suspect]
     Route: 041
     Dates: start: 20111031, end: 20111031
  8. HALCION [Concomitant]
     Route: 048
     Dates: end: 20111123
  9. MOBIC [Concomitant]
     Route: 048
     Dates: end: 20111130
  10. AMLODIPINE [Concomitant]
     Route: 048
     Dates: end: 20111130

REACTIONS (1)
  - INTERSTITIAL LUNG DISEASE [None]
